FAERS Safety Report 6276133-4 (Version None)
Quarter: 2009Q3

REPORT INFORMATION
  Report Type: 
  Country: None (occurrence: None)
  Receive Date: 20090717
  Receipt Date: 20090717
  Transmission Date: 20100115
  Serious: Yes (Other)
  Sender: FDA-Public Use
  Company Number: None

PATIENT
  Age: 75 Year
  Sex: Female
  Weight: 81.6475 kg

DRUGS (1)
  1. SULFAMETHOXAZOLE AND TRIMETHOPRIM [Suspect]
     Indication: URINARY TRACT INFECTION
     Dosage: 1 TABLET 2X DAILY; 1 ON 6/19/09 - PM / 1 ON 6/20/09 AM
     Dates: start: 20090619, end: 20090620

REACTIONS (5)
  - ERYTHEMA [None]
  - EYE SWELLING [None]
  - NAUSEA [None]
  - RASH [None]
  - SWELLING FACE [None]
